FAERS Safety Report 15801910 (Version 2)
Quarter: 2021Q2

REPORT INFORMATION
  Report Type: Spontaneous
  Country: ES (occurrence: ES)
  Receive Date: 20190109
  Receipt Date: 20210624
  Transmission Date: 20210716
  Serious: Yes (Congenital Anomaly)
  Sender: FDA-Public Use
  Company Number: ES-BAYER-2019-002867

PATIENT

DRUGS (1)
  1. KYLEENA [Suspect]
     Active Substance: LEVONORGESTREL
     Dosage: 17.5 MCG/24HR, CONT
     Route: 064
     Dates: start: 20180521

REACTIONS (5)
  - Congenital hydrocephalus [None]
  - Foetal malformation [None]
  - Spina bifida [None]
  - Foetal exposure during pregnancy [None]
  - Limb malformation [None]

NARRATIVE: CASE EVENT DATE: 2018
